FAERS Safety Report 9270117 (Version 1)
Quarter: 2013Q2

REPORT INFORMATION
  Report Type: Report from Study
  Country: US (occurrence: US)
  Receive Date: 20130503
  Receipt Date: 20130503
  Transmission Date: 20140414
  Serious: Yes (Death, Hospitalization, Other)
  Sender: FDA-Public Use
  Company Number: US-TEVA-358421USA

PATIENT
  Age: 74 Year
  Sex: Male

DRUGS (10)
  1. CARVEDILOL [Suspect]
     Dosage: 12.5 MILLIGRAM DAILY;
     Route: 048
  2. DILTIAZEM [Suspect]
     Dosage: 240 MILLIGRAM DAILY;
     Route: 048
  3. SAXAGLIPTIN [Suspect]
     Indication: TYPE 2 DIABETES MELLITUS
     Dates: start: 20110503, end: 20110627
  4. LISINOPRIL [Suspect]
     Dosage: 80 MILLIGRAM DAILY;
     Route: 048
  5. DIGOXIN [Suspect]
     Dosage: 250 MICROGRAM DAILY;
     Route: 048
  6. HUMALOG [Suspect]
     Indication: TYPE 2 DIABETES MELLITUS
  7. CENTRUM [Concomitant]
  8. LEVOTHYROXINE SODIUM [Concomitant]
  9. ERGOCALCIFEROL [Concomitant]
  10. CLOPIDOGREL [Concomitant]

REACTIONS (2)
  - Nodal arrhythmia [Recovered/Resolved]
  - Cardiac failure congestive [Fatal]
